FAERS Safety Report 7204612-1 (Version None)
Quarter: 2010Q4

REPORT INFORMATION
  Report Type: 
  Country: None (occurrence: None)
  Receive Date: 20101230
  Receipt Date: 20101221
  Transmission Date: 20110411
  Serious: Yes (Life-Threatening)
  Sender: FDA-Public Use
  Company Number: JP-MERCK-1012USA01289

PATIENT
  Age: 46 Year
  Sex: Male

DRUGS (5)
  1. COSOPT [Suspect]
     Indication: OCULAR HYPERTENSION
     Dosage: RIGHT EYE
     Route: 047
     Dates: start: 20101111, end: 20101115
  2. VEGAMOX [Suspect]
     Indication: ANTIBIOTIC THERAPY
     Dosage: ONE DROP TO EACH EYE PER DOSE
     Route: 047
     Dates: start: 20101111
  3. LUMIGAN [Suspect]
     Indication: OCULAR HYPERTENSION
     Dosage: RIGHT EYE
     Route: 047
     Dates: start: 20101111, end: 20101115
  4. TOBRACIN (TOBRAMYCIN) [Suspect]
     Indication: ANTIBIOTIC THERAPY
     Dosage: ONE DROP TO EACH EYE PER DOSE, 6 TIMES A DAY
     Route: 047
     Dates: start: 20101111, end: 20101122
  5. RINDERON (BETAMETHASONE) [Suspect]
     Indication: INFLAMMATION
     Dosage: ONE DROP TO EACH EYE PER DOSE
     Route: 047
     Dates: start: 20101115, end: 20101129

REACTIONS (2)
  - BRADYCARDIA [None]
  - ELECTROCARDIOGRAM QT PROLONGED [None]
